FAERS Safety Report 17010715 (Version 2)
Quarter: 2019Q4

REPORT INFORMATION
  Report Type: Spontaneous
  Country: PT (occurrence: PT)
  Receive Date: 20191108
  Receipt Date: 20191111
  Transmission Date: 20200122
  Serious: Yes (Other)
  Sender: FDA-Public Use
  Company Number: PT-MYLANLABS-2019M1106534

PATIENT
  Age: 73 Year
  Sex: Male

DRUGS (6)
  1. AMLODIPINE BESILATE/VALSARTAN [Suspect]
     Active Substance: AMLODIPINE BESYLATE\VALSARTAN
     Indication: PRODUCT USED FOR UNKNOWN INDICATION
     Dosage: 1 DOSAGE FORM, QD (ONCE DAILY)
     Route: 065
  2. METFORMIN W/VILDAGLIPTIN [Suspect]
     Active Substance: METFORMIN HYDROCHLORIDE\VILDAGLIPTIN
     Indication: PRODUCT USED FOR UNKNOWN INDICATION
     Dosage: TWICE DAILY
     Route: 065
  3. BISOPROLOL [Suspect]
     Active Substance: BISOPROLOL
     Indication: PRODUCT USED FOR UNKNOWN INDICATION
     Dosage: 5 MILLIGRAM, QD (ONCE DAILY)
     Route: 065
  4. SERENOA REPENS EXTRACT [Suspect]
     Active Substance: HERBALS\SAW PALMETTO
     Dosage: UNK
  5. SIMVASTATIN. [Suspect]
     Active Substance: SIMVASTATIN
     Indication: PRODUCT USED FOR UNKNOWN INDICATION
     Dosage: 20 MILLIGRAM, QD (ONCE DAILY)
     Route: 065
  6. SERENOA REPENS EXTRACT [Suspect]
     Active Substance: HERBALS\SAW PALMETTO
     Indication: PRODUCT USED FOR UNKNOWN INDICATION
     Dosage: 160 MILLIGRAM, QD (ONCE DAILY)

REACTIONS (4)
  - Pancreatic carcinoma metastatic [Not Recovered/Not Resolved]
  - Glycosylated haemoglobin increased [Unknown]
  - Adenocarcinoma pancreas [Not Recovered/Not Resolved]
  - Underdose [Unknown]

NARRATIVE: CASE EVENT DATE: 201607
